FAERS Safety Report 13025973 (Version 1)
Quarter: 2016Q4

REPORT INFORMATION
  Report Type: Spontaneous
  Country: US (occurrence: US)
  Receive Date: 20161213
  Receipt Date: 20161213
  Transmission Date: 20170207
  Serious: Yes (Other)
  Sender: FDA-Public Use
  Company Number: None

PATIENT
  Age: 54 Year
  Sex: Female
  Weight: 88.2 kg

DRUGS (4)
  1. OTEZLA [Suspect]
     Active Substance: APREMILAST
     Indication: ARTHRITIS
     Route: 048
     Dates: start: 20161001, end: 20161101
  2. DEPAKOTE ER [Concomitant]
     Active Substance: DIVALPROEX SODIUM
  3. CLONAZEPAM. [Concomitant]
     Active Substance: CLONAZEPAM
  4. OTEZLA [Suspect]
     Active Substance: APREMILAST
     Indication: PSORIASIS
     Route: 048
     Dates: start: 20161001, end: 20161101

REACTIONS (10)
  - Insomnia [None]
  - Grandiosity [None]
  - Impulsive behaviour [None]
  - Suicidal ideation [None]
  - Distractibility [None]
  - Psychomotor hyperactivity [None]
  - Flight of ideas [None]
  - Pressure of speech [None]
  - Depression [None]
  - Crying [None]

NARRATIVE: CASE EVENT DATE: 20161101
